FAERS Safety Report 7254576-X (Version None)
Quarter: 2011Q1

REPORT INFORMATION
  Report Type: 
  Country: None (occurrence: None)
  Receive Date: 20110129
  Receipt Date: 20100211
  Transmission Date: 20110831
  Serious: No
  Sender: FDA-Public Use
  Company Number: US-ABBOTT-10P-163-0626491-00

PATIENT
  Sex: Male

DRUGS (4)
  1. WARFARIN SODIUM [Concomitant]
     Indication: ARTERIAL OCCLUSIVE DISEASE
     Dates: start: 20090101
  2. BLOOD PRESSURE MEDICATION [Concomitant]
     Indication: HYPERTENSION
  3. HEART MEDICATION [Concomitant]
     Indication: ARRHYTHMIA
     Dates: start: 20090101
  4. HUMIRA [Suspect]
     Indication: PSORIASIS
     Dates: start: 20090701, end: 20091218

REACTIONS (1)
  - PSORIASIS [None]
